FAERS Safety Report 10901892 (Version 1)
Quarter: 2015Q1

REPORT INFORMATION
  Report Type: Spontaneous
  Country: FR (occurrence: FR)
  Receive Date: 20150310
  Receipt Date: 20150310
  Transmission Date: 20150721
  Serious: Yes (Hospitalization, Other)
  Sender: FDA-Public Use
  Company Number: FR-GLAXOSMITHKLINE-FR2015GSK028550

PATIENT
  Age: 13 Year
  Sex: Male

DRUGS (5)
  1. VENTOLINE [Suspect]
     Active Substance: ALBUTEROL
     Indication: ASTHMATIC CRISIS
     Dosage: UNK
     Route: 042
     Dates: start: 20150113, end: 20150114
  2. DOLIPRANE [Concomitant]
     Active Substance: ACETAMINOPHEN
     Dosage: 4 UNK, QD
     Route: 048
     Dates: start: 20150113
  3. ATROVENT [Suspect]
     Active Substance: IPRATROPIUM BROMIDE
     Indication: ASTHMATIC CRISIS
     Dosage: 0.5 MG, UNK
     Route: 055
     Dates: start: 20150113, end: 20150115
  4. VENTOLINE [Suspect]
     Active Substance: ALBUTEROL
     Indication: ASTHMATIC CRISIS
     Dosage: 5 MG, 6D
     Route: 055
     Dates: start: 20150113
  5. SOLUPRED [Suspect]
     Active Substance: PREDNISOLONE
     Indication: ASTHMATIC CRISIS
     Dosage: 60 MG, QD
     Route: 048
     Dates: start: 20150113

REACTIONS (5)
  - Chest pain [Recovered/Resolved]
  - Electrocardiogram ST segment elevation [Recovering/Resolving]
  - N-terminal prohormone brain natriuretic peptide increased [Recovering/Resolving]
  - Tachycardia [Recovering/Resolving]
  - Troponin increased [Recovering/Resolving]

NARRATIVE: CASE EVENT DATE: 20150113
